FAERS Safety Report 8173036-5 (Version None)
Quarter: 2012Q1

REPORT INFORMATION
  Report Type: 
  Country: None (occurrence: None)
  Receive Date: 20120223
  Receipt Date: 20120210
  Transmission Date: 20120608
  Serious: Yes (Death)
  Sender: FDA-Public Use
  Company Number: JPI-P-014191

PATIENT
  Age: 81 Year
  Sex: Female

DRUGS (1)
  1. XYREM [Suspect]
     Indication: NARCOLEPSY
     Dosage: (1.5 GM FIRST DOSE/1 GM SECOND DOSE),ORAL
     Route: 048
     Dates: start: 20110221, end: 20110310

REACTIONS (6)
  - SLEEP APNOEA SYNDROME [None]
  - EXPOSURE TO TOXIC AGENT [None]
  - PERIPHERAL VASCULAR DISORDER [None]
  - ARTERIOSCLEROSIS CORONARY ARTERY [None]
  - DEMENTIA ALZHEIMER'S TYPE [None]
  - MYOCARDIAL INFARCTION [None]
